FAERS Safety Report 24289913 (Version 1)
Quarter: 2024Q3

REPORT INFORMATION
  Report Type: Spontaneous
  Country: US (occurrence: US)
  Receive Date: 20240906
  Receipt Date: 20240906
  Transmission Date: 20241017
  Serious: Yes (Death, Hospitalization, Other)
  Sender: DR REDDYS
  Company Number: US-DRL-USA-SPO/USA/24/0012724

PATIENT
  Age: 72 Year
  Sex: Male

DRUGS (9)
  1. OLANZAPINE [Suspect]
     Active Substance: OLANZAPINE
     Indication: Psychotic disorder
  2. QUETIAPINE [Suspect]
     Active Substance: QUETIAPINE
     Indication: Psychotic disorder
  3. RISPERIDONE [Suspect]
     Active Substance: RISPERIDONE
     Indication: Psychotic disorder
  4. Folinic acid [leucovorin] [Concomitant]
     Indication: Adenocarcinoma pancreas
  5. Folinic acid [leucovorin] [Concomitant]
     Indication: Metastases to peritoneum
  6. FLUOROURACIL [Concomitant]
     Active Substance: FLUOROURACIL
     Indication: Adenocarcinoma pancreas
  7. FLUOROURACIL [Concomitant]
     Active Substance: FLUOROURACIL
     Indication: Metastases to peritoneum
  8. IRINOTECAN [Concomitant]
     Active Substance: IRINOTECAN
     Indication: Adenocarcinoma pancreas
  9. IRINOTECAN [Concomitant]
     Active Substance: IRINOTECAN
     Indication: Metastases to peritoneum

REACTIONS (6)
  - Death [Fatal]
  - Renal failure [Unknown]
  - Haematemesis [Unknown]
  - Confusional state [Unknown]
  - Condition aggravated [Unknown]
  - Therapy non-responder [Unknown]
